FAERS Safety Report 15719396 (Version 8)
Quarter: 2019Q3

REPORT INFORMATION
  Report Type: Report from Study
  Country: DE (occurrence: DE)
  Receive Date: 20181213
  Receipt Date: 20190709
  Transmission Date: 20191004
  Serious: Yes (Hospitalization, Other)
  Sender: FDA-Public Use
  Company Number: PHHY2018DE180267

PATIENT
  Sex: Female
  Weight: 78 kg

DRUGS (2)
  1. KISQALI [Suspect]
     Active Substance: RIBOCICLIB
     Indication: BREAST CANCER
     Dosage: 600 MG, QD (3X200 MG), FOR 21 DAYS 7 DAYS PAUSE
     Route: 065
     Dates: start: 20180822
  2. LETROZOLE 1A PHARMA [Suspect]
     Active Substance: LETROZOLE
     Indication: BREAST CANCER
     Dosage: 2.5 MG, QD
     Route: 048
     Dates: start: 20180801

REACTIONS (6)
  - Haematochezia [Recovered/Resolved]
  - Lymphocytosis [Recovered/Resolved]
  - Rash [Recovering/Resolving]
  - Hyperhidrosis [Recovering/Resolving]
  - Neutropenia [Recovered/Resolved]
  - Gastrointestinal haemorrhage [Recovered/Resolved]

NARRATIVE: CASE EVENT DATE: 20181114
